FAERS Safety Report 4460085-3 (Version None)
Quarter: 2004Q3

REPORT INFORMATION
  Report Type: 
  Country: None (occurrence: None)
  Receive Date: 20040928
  Receipt Date: 20031203
  Transmission Date: 20050211
  Serious: No
  Sender: FDA-Public Use
  Company Number: US-GLAXOSMITHKLINE-A0441783A

PATIENT
  Age: 61 Year
  Sex: Female

DRUGS (5)
  1. SEREVENT [Suspect]
     Indication: ASTHMA
     Dosage: 2PUFF TWICE PER DAY
     Route: 055
     Dates: start: 20031127
  2. THEO-DUR [Concomitant]
  3. AVELOX [Concomitant]
  4. MULTIVITAMIN [Concomitant]
  5. TYLENOL [Concomitant]

REACTIONS (3)
  - DRUG INEFFECTIVE [None]
  - DYSPNOEA [None]
  - OVERDOSE [None]
